FAERS Safety Report 7141990-6 (Version None)
Quarter: 2010Q4

REPORT INFORMATION
  Report Type: 
  Country: None (occurrence: None)
  Receive Date: 20101207
  Receipt Date: 20101124
  Transmission Date: 20110411
  Serious: Yes (Other)
  Sender: FDA-Public Use
  Company Number: A0848990A

PATIENT
  Sex: Female

DRUGS (1)
  1. AVANDIA [Suspect]
     Indication: DIABETES MELLITUS
     Route: 048
     Dates: start: 20030717, end: 20060821

REACTIONS (6)
  - BLOOD DISORDER [None]
  - BLOOD GLUCOSE DECREASED [None]
  - CARDIAC FAILURE CONGESTIVE [None]
  - DYSPNOEA [None]
  - LOSS OF CONSCIOUSNESS [None]
  - WEIGHT INCREASED [None]
